FAERS Safety Report 9279509 (Version 1)
Quarter: 2013Q2

REPORT INFORMATION
  Report Type: Spontaneous
  Country: US (occurrence: US)
  Receive Date: 20130508
  Receipt Date: 20130508
  Transmission Date: 20140414
  Serious: Yes (Hospitalization, Other)
  Sender: FDA-Public Use
  Company Number: US-BRISTOL-MYERS SQUIBB COMPANY-18852004

PATIENT
  Sex: Female

DRUGS (2)
  1. ABILIFY [Suspect]
     Indication: SCHIZOPHRENIA
  2. SEROQUEL [Concomitant]
     Dosage: ALSO TOOK 150MG IN PAST

REACTIONS (4)
  - Schizophrenia [Unknown]
  - Psychotic disorder [Unknown]
  - Weight increased [Unknown]
  - Restlessness [Unknown]
